FAERS Safety Report 18688599 (Version 1)
Quarter: 2020Q4

REPORT INFORMATION
  Report Type: Spontaneous
  Country: US (occurrence: US)
  Receive Date: 20201231
  Receipt Date: 20201231
  Transmission Date: 20210114
  Serious: Yes (Other)
  Sender: FDA-Public Use
  Company Number: US-AMNEAL PHARMACEUTICALS-2020-AMRX-04014

PATIENT
  Sex: Female

DRUGS (9)
  1. RYTARY [Suspect]
     Active Substance: CARBIDOPA\LEVODOPA
     Dosage: 48.75/195 MG, 1 CAPSULES, 4 /DAY WITH 36.25/145MG, 2 CAP, 4 /DAY
     Route: 048
     Dates: start: 20201111, end: 2020
  2. RYTARY [Suspect]
     Active Substance: CARBIDOPA\LEVODOPA
     Dosage: 48.75/195MG, 1 CAPSULES, 4 /DAY
     Route: 048
     Dates: start: 20200324, end: 20200504
  3. RYTARY [Suspect]
     Active Substance: CARBIDOPA\LEVODOPA
     Dosage: 48.75/195MG, 2 CAPSULES, 4 /DAY
     Route: 048
     Dates: start: 20200504, end: 2020
  4. RYTARY [Suspect]
     Active Substance: CARBIDOPA\LEVODOPA
     Dosage: 36.25/145MG, 1 CAPSULES, 4 /DAY WITH 48.75/195MG 1 CAPSULE FOUR DAILY
     Route: 048
     Dates: start: 20201218
  5. RYTARY [Suspect]
     Active Substance: CARBIDOPA\LEVODOPA
     Dosage: 36.25/145MG, 1 CAPSULES, 4 /DAY WITH 48.75/195MG 1 CAPSULE FOUR DAILY
     Route: 048
     Dates: end: 20200324
  6. RYTARY [Suspect]
     Active Substance: CARBIDOPA\LEVODOPA
     Dosage: 36.25-145MG, 2 CAPSULES, 4 /DAY WITH 48.75-195MG 2 CAPSULES, 4 /DAY
     Route: 048
     Dates: start: 2020, end: 2020
  7. RYTARY [Suspect]
     Active Substance: CARBIDOPA\LEVODOPA
     Indication: PARKINSON^S DISEASE
     Dosage: 36.25/145 MG, 2 CAPSULES, 4 /DAY WITH 48.75/195 MG 1 CAP 4 /DAY
     Route: 048
     Dates: start: 20201111, end: 2020
  8. RYTARY [Suspect]
     Active Substance: CARBIDOPA\LEVODOPA
     Dosage: 48.75-195MG, 2 CAPSULES, 4 /DAY WITH 36.25-145MG 2 CAPSULES, 4 /DAY
     Route: 048
     Dates: start: 2020, end: 2020
  9. RYTARY [Suspect]
     Active Substance: CARBIDOPA\LEVODOPA
     Dosage: 36.25/145MG, 3 CAPSULES, 4 /DAY
     Route: 048
     Dates: start: 2020, end: 20200629

REACTIONS (3)
  - Urinary tract infection [Unknown]
  - Weight decreased [Recovered/Resolved]
  - COVID-19 [Recovered/Resolved]

NARRATIVE: CASE EVENT DATE: 2020
